FAERS Safety Report 8342774-3 (Version None)
Quarter: 2012Q2

REPORT INFORMATION
  Report Type: 
  Country: None (occurrence: None)
  Receive Date: 20120503
  Receipt Date: 20120413
  Transmission Date: 20120825
  Serious: Yes (Life-Threatening)
  Sender: FDA-Public Use
  Company Number: PT-008085

PATIENT
  Age: 79 Year
  Sex: Male

DRUGS (12)
  1. LISINOPRIL [Concomitant]
  2. ESOMEPRAZOLE MAGNESIUM [Concomitant]
  3. FIRMAGON [Suspect]
     Indication: PROSTATE CANCER METASTATIC
     Dosage: 240 MG, QD, 80 MG 1XMONTH, SUBCUTANEOUS
     Route: 058
     Dates: start: 20120305, end: 20120305
  4. FIRMAGON [Suspect]
     Indication: PROSTATE CANCER METASTATIC
     Dosage: 240 MG, QD, 80 MG 1XMONTH, SUBCUTANEOUS
     Route: 058
     Dates: start: 20120403
  5. ALLOPURINOL [Concomitant]
  6. CALCIUM CARBONATE [Concomitant]
  7. DARBEPOETIN ALFA [Concomitant]
  8. ESTRAMUSTINE PHOSPHATE SODIUM [Concomitant]
  9. ACETYLSALICYLIC ACID SRT [Concomitant]
  10. BISOPROLOL FUMARATE [Concomitant]
  11. CALCITRIOL [Concomitant]
  12. BICALUTAMIDE [Concomitant]

REACTIONS (5)
  - PYREXIA [None]
  - THROMBOCYTOPENIA [None]
  - DEVICE RELATED INFECTION [None]
  - PUNCTURE SITE HAEMORRHAGE [None]
  - NEUTROPENIA [None]
